FAERS Safety Report 6714297-6 (Version None)
Quarter: 2010Q2

REPORT INFORMATION
  Report Type: 
  Country: None (occurrence: None)
  Receive Date: 20100506
  Receipt Date: 20100426
  Transmission Date: 20101027
  Serious: Yes (Other)
  Sender: FDA-Public Use
  Company Number: GB-BAUSCH-2010BL002193

PATIENT
  Age: 19 Year
  Sex: Female

DRUGS (14)
  1. PHENYLEPHRINE [Suspect]
     Indication: OFF LABEL USE
     Route: 048
     Dates: start: 20100413, end: 20100413
  2. PHENYLEPHRINE [Suspect]
     Indication: INTENTIONAL OVERDOSE
     Route: 048
     Dates: start: 20100413, end: 20100413
  3. AMOXICILLIN [Suspect]
     Indication: OFF LABEL USE
     Route: 048
     Dates: start: 20100413, end: 20100413
  4. AMOXICILLIN [Suspect]
     Indication: INTENTIONAL OVERDOSE
     Route: 048
     Dates: start: 20100413, end: 20100413
  5. DO-DO ^COB^ [Suspect]
     Indication: OFF LABEL USE
     Route: 048
     Dates: start: 20100413, end: 20100413
  6. DO-DO ^COB^ [Suspect]
     Indication: INTENTIONAL OVERDOSE
     Route: 048
     Dates: start: 20100413, end: 20100413
  7. NYTOL [Suspect]
     Indication: OFF LABEL USE
     Route: 048
     Dates: start: 20100413, end: 20100413
  8. NYTOL [Suspect]
     Indication: INTENTIONAL OVERDOSE
     Route: 048
     Dates: start: 20100413, end: 20100413
  9. PARACETAMOL [Suspect]
     Indication: OFF LABEL USE
     Route: 048
     Dates: start: 20100413, end: 20100413
  10. PARACETAMOL [Suspect]
     Indication: INTENTIONAL OVERDOSE
     Route: 048
     Dates: start: 20100413, end: 20100413
  11. THEOPHYLLINE [Suspect]
     Indication: OFF LABEL USE
     Route: 048
     Dates: start: 20100413, end: 20100413
  12. THEOPHYLLINE [Suspect]
     Indication: INTENTIONAL OVERDOSE
     Route: 048
     Dates: start: 20100413, end: 20100413
  13. ZOPICLONE [Suspect]
     Indication: OFF LABEL USE
     Route: 048
     Dates: start: 20100413, end: 20100413
  14. ZOPICLONE [Suspect]
     Indication: INTENTIONAL OVERDOSE
     Route: 048
     Dates: start: 20100413, end: 20100413

REACTIONS (2)
  - INTENTIONAL OVERDOSE [None]
  - RHABDOMYOLYSIS [None]
